FAERS Safety Report 6312265-X (Version None)
Quarter: 2009Q3

REPORT INFORMATION
  Report Type: 
  Country: None (occurrence: None)
  Receive Date: 20090817
  Receipt Date: 20090805
  Transmission Date: 20100115
  Serious: Yes (Hospitalization)
  Sender: FDA-Public Use
  Company Number: CH-WYE-H10512009

PATIENT
  Age: 72 Year
  Sex: Female

DRUGS (9)
  1. PANTOZOL [Suspect]
     Indication: PAIN
     Route: 048
     Dates: start: 20090628, end: 20090715
  2. PANTOZOL [Suspect]
     Indication: PROPHYLAXIS AGAINST GASTROINTESTINAL ULCER
  3. METAMIZOLE SODIUM [Suspect]
     Indication: PAIN
     Route: 042
     Dates: start: 20090628, end: 20090628
  4. METAMIZOLE SODIUM [Suspect]
     Route: 048
     Dates: start: 20090701, end: 20090703
  5. MARCUMAR [Concomitant]
     Indication: PULMONARY EMBOLISM
     Dosage: UNKNOWN
     Route: 048
     Dates: start: 20090701
  6. BLOPRESS [Concomitant]
     Indication: HYPERTENSION
     Route: 048
  7. CLEXANE [Concomitant]
     Indication: PULMONARY EMBOLISM
     Dosage: 180 MG, UNSPECIFIED FREQUENCY
     Route: 058
     Dates: start: 20090627, end: 20090719
  8. DAFALGAN [Suspect]
     Indication: PAIN
     Dosage: TOTAL OF 10 TIMES AT A DOSE OF 1 G AS REQUIRED
     Route: 048
     Dates: start: 20090627, end: 20090718
  9. SORTIS ^GOEDECKE^ [Concomitant]
     Indication: HYPERCHOLESTEROLAEMIA
     Dosage: UNKNOWN

REACTIONS (1)
  - AGRANULOCYTOSIS [None]
